FAERS Safety Report 7442514-6 (Version None)
Quarter: 2011Q2

REPORT INFORMATION
  Report Type: 
  Country: None (occurrence: None)
  Receive Date: 20110425
  Receipt Date: 20110425
  Transmission Date: 20111010
  Serious: Yes (Other)
  Sender: FDA-Public Use
  Company Number: None

PATIENT
  Sex: Female
  Weight: 72.5755 kg

DRUGS (2)
  1. INVEGA SUSTENNA [Suspect]
     Dates: start: 20110408, end: 20110408
  2. INVEGA SUSTENNA [Suspect]
     Dates: start: 20110401, end: 20110401

REACTIONS (5)
  - INSOMNIA [None]
  - DISTURBANCE IN ATTENTION [None]
  - DYSPNOEA [None]
  - INJECTION SITE URTICARIA [None]
  - SOMNOLENCE [None]
